FAERS Safety Report 14699210 (Version 1)
Quarter: 2018Q1

REPORT INFORMATION
  Report Type: Spontaneous
  Country: US (occurrence: US)
  Receive Date: 20180330
  Receipt Date: 20180330
  Transmission Date: 20180509
  Serious: Yes (Other)
  Sender: FDA-Public Use
  Company Number: US-MYLANLABS-2018M1018354

PATIENT
  Sex: Female

DRUGS (2)
  1. EMSAM [Suspect]
     Active Substance: SELEGILINE
     Indication: PRODUCT USED FOR UNKNOWN INDICATION
     Dosage: 9 MG, UNK
     Route: 062
  2. EMSAM [Suspect]
     Active Substance: SELEGILINE
     Dosage: 6 MG, UNK
     Route: 062

REACTIONS (2)
  - Blood pressure systolic increased [Unknown]
  - Blood sodium decreased [Unknown]
